FAERS Safety Report 5363369 (Version 2)
Quarter: 2020Q3

REPORT INFORMATION
  Report Type: Spontaneous
  Country: US (occurrence: None)
  Receive Date: 19960209
  Receipt Date: 19990301
  Transmission Date: 20201105
  Serious: No
  Sender: FDA-Public Use
  Company Number: A0012729

PATIENT
  Age: 68 Year
  Sex: Female

DRUGS (9)
  1. PROMETHAZINE HYDROCHLORIDE. [Concomitant]
     Active Substance: PROMETHAZINE HYDROCHLORIDE
  2. IMITREX [Suspect]
     Active Substance: SUMATRIPTAN SUCCINATE
     Indication: MIGRAINE
     Dosage: AS REQUIRED/ SUBCUTANEOUS
     Route: 058
     Dates: start: 1993
  3. SALSALATE. [Suspect]
     Active Substance: SALSALATE
     Dosage: AS REQUIRED
  4. HYDOXYZINE [Concomitant]
  5. DYAZIDE [Concomitant]
     Active Substance: HYDROCHLOROTHIAZIDE\TRIAMTERENE
  6. CONJUGATED ESTROGENS [Concomitant]
     Active Substance: ESTROGENS, CONJUGATED
  7. CALCIUM SALT [Concomitant]
  8. VICODIN [Concomitant]
     Active Substance: ACETAMINOPHEN\HYDROCODONE BITARTRATE
  9. DIAZEPAM. [Concomitant]
     Active Substance: DIAZEPAM

REACTIONS (9)
  - Burning sensation [None]
  - Hypersensitivity [None]
  - Abdominal discomfort [None]
  - Arthropod bite [None]
  - Alopecia [None]
  - Pruritus [None]
  - Angiopathy [None]
  - Urticaria [None]
  - Rash erythematous [None]

NARRATIVE: CASE EVENT DATE: 199509
